FAERS Safety Report 7280552-7 (Version None)
Quarter: 2011Q1

REPORT INFORMATION
  Report Type: 
  Country: None (occurrence: None)
  Receive Date: 20110131
  Receipt Date: 20110114
  Transmission Date: 20110831
  Serious: Yes (Death, Hospitalization)
  Sender: FDA-Public Use
  Company Number: 2011EK000003

PATIENT
  Age: 80 Year
  Sex: Male

DRUGS (6)
  1. RETAVASE [Suspect]
     Indication: MYOCARDIAL INFARCTION
     Dosage: 10 U
  2. VASOTEC [Concomitant]
  3. HEPARIN [Suspect]
     Indication: PRODUCT USED FOR UNKNOWN INDICATION
  4. CARDIZEM [Concomitant]
  5. HYTRIN [Concomitant]
  6. MAXZIDE [Concomitant]

REACTIONS (1)
  - PULSE ABSENT [None]
